FAERS Safety Report 15644843 (Version 3)
Quarter: 2020Q4

REPORT INFORMATION
  Report Type: Report from Study
  Country: HU (occurrence: HU)
  Receive Date: 20181121
  Receipt Date: 20201008
  Transmission Date: 20210113
  Serious: Yes (Hospitalization)
  Sender: FDA-Public Use
  Company Number: HU-EXELIXIS-XL18418016761

PATIENT
  Age: 81 Year
  Sex: Female
  Weight: 64 kg

DRUGS (13)
  1. BLINDED XL184 [Suspect]
     Active Substance: CABOZANTINIB
     Dosage: 140 OR 60 MG QD
     Route: 048
     Dates: start: 20180618
  2. L-THYROXIN [Concomitant]
     Active Substance: LEVOTHYROXINE SODIUM
  3. BLINDED XL184 [Suspect]
     Active Substance: CABOZANTINIB
     Dosage: 60 OR 20 MG QD
     Route: 048
     Dates: end: 20181027
  4. MINIPRESS R [Concomitant]
  5. ASPIRIN PROTECT [Concomitant]
     Active Substance: ASPIRIN
  6. RAWEL SR [Concomitant]
  7. PANTOPRAZOL [Concomitant]
     Active Substance: PANTOPRAZOLE SODIUM
  8. VEROSPIRON [Concomitant]
     Active Substance: SPIRONOLACTONE
  9. BLINDED XL184 [Suspect]
     Active Substance: CABOZANTINIB
     Dosage: 140 OR 60 MG QD
     Route: 048
     Dates: start: 20180618
  10. BLINDED XL184 [Suspect]
     Active Substance: CABOZANTINIB
     Dosage: 60 OR 20 MG QD
     Route: 048
     Dates: end: 20181027
  11. TALLITON [Concomitant]
     Active Substance: CARVEDILOL
  12. TANYDON [Concomitant]
  13. VENTER [Concomitant]

REACTIONS (1)
  - Transient ischaemic attack [Recovered/Resolved]

NARRATIVE: CASE EVENT DATE: 20181028
